FAERS Safety Report 10214546 (Version 2)
Quarter: 2014Q3

REPORT INFORMATION
  Report Type: Spontaneous
  Country: CH (occurrence: CH)
  Receive Date: 20140603
  Receipt Date: 20140828
  Transmission Date: 20150326
  Serious: Yes (Death)
  Sender: FDA-Public Use
  Company Number: CH-TEVA-483594ISR

PATIENT
  Age: 79 Year
  Sex: Female

DRUGS (11)
  1. BRILIQUE [Suspect]
     Active Substance: TICAGRELOR
     Indication: ACUTE MYOCARDIAL INFARCTION
     Dosage: 180 MILLIGRAM DAILY; DISCONTINUED AFTER HOSPITALIZATION
     Route: 048
     Dates: start: 201312, end: 20140210
  2. PANTOZOL [Suspect]
     Active Substance: PANTOPRAZOLE SODIUM
     Dosage: 40 MILLIGRAM DAILY;
     Route: 065
  3. ASPIRIN CARDIO [Concomitant]
     Active Substance: ASPIRIN
     Dosage: 100 MILLIGRAM DAILY;
     Route: 065
  4. ELTROXIN [Concomitant]
     Active Substance: LEVOTHYROXINE
     Dosage: .05 MILLIGRAM DAILY;
     Route: 065
  5. CALCIMAGON D3 [Concomitant]
     Active Substance: CALCIUM\CHOLECALCIFEROL
     Route: 065
     Dates: end: 20140205
  6. ALDACTONE [Suspect]
     Active Substance: SPIRONOLACTONE
     Indication: CORONARY ARTERY DISEASE
     Dosage: 25 MILLIGRAM DAILY;
     Route: 065
     Dates: end: 20140205
  7. DIOVAN [Concomitant]
     Active Substance: VALSARTAN
     Dosage: 320 MILLIGRAM DAILY; DISCONTINUED AFTER HOSPITALIZATION
     Route: 048
     Dates: end: 20140205
  8. ATORVASTATIN [Suspect]
     Active Substance: ATORVASTATIN
     Indication: DYSLIPIDAEMIA
     Dosage: 40 MILLIGRAM DAILY; DISCONTINUED AFTER HOSPITALIZATION
     Route: 048
     Dates: end: 20140205
  9. TOREM 10 [Concomitant]
     Active Substance: TORSEMIDE
     Dosage: 5 MILLIGRAM DAILY; DISCONTINUED AFTER HOSPITALIZATION
     Route: 048
     Dates: end: 20140205
  10. CO-AMOXI-MEPHA [Suspect]
     Active Substance: AMOXICILLIN\CLAVULANATE POTASSIUM
     Indication: PNEUMONIA BACTERIAL
     Route: 065
     Dates: start: 20131228, end: 20140106
  11. DILATREND 6.25 [Concomitant]
     Dosage: 1.5 TABLET DAILY;
     Route: 048

REACTIONS (8)
  - Liver disorder [Fatal]
  - Cholestasis [Fatal]
  - Blood alkaline phosphatase increased [Fatal]
  - Drug-induced liver injury [Fatal]
  - Blood bilirubin increased [Fatal]
  - Hepatic steatosis [Fatal]
  - Transaminases increased [Fatal]
  - Jaundice cholestatic [Fatal]

NARRATIVE: CASE EVENT DATE: 20140205
